FAERS Safety Report 6265781-3 (Version None)
Quarter: 2009Q3

REPORT INFORMATION
  Report Type: 
  Country: None (occurrence: None)
  Receive Date: 20090709
  Receipt Date: 20090709
  Transmission Date: 20100115
  Serious: Yes (Hospitalization)
  Sender: FDA-Public Use
  Company Number: None

PATIENT
  Age: 59 Year
  Sex: Female
  Weight: 59.8 kg

DRUGS (1)
  1. ITRACONAZOLE [Suspect]
     Indication: BREAST CANCER METASTATIC
     Dosage: 200 QD PO
     Route: 048
     Dates: start: 20090523, end: 20090702

REACTIONS (6)
  - BLOOD ALBUMIN DECREASED [None]
  - CONDITION AGGRAVATED [None]
  - DISEASE PROGRESSION [None]
  - HYPOPHAGIA [None]
  - OEDEMA PERIPHERAL [None]
  - PLEURAL EFFUSION [None]
